FAERS Safety Report 10714910 (Version 2)
Quarter: 2015Q1

REPORT INFORMATION
  Report Type: Spontaneous
  Country: FR (occurrence: FR)
  Receive Date: 20150115
  Receipt Date: 20150121
  Transmission Date: 20150721
  Serious: Yes (Other)
  Sender: FDA-Public Use
  Company Number: FR-009507513-1412FRA002727

PATIENT
  Age: 17 Year
  Sex: Female
  Weight: 48 kg

DRUGS (1)
  1. NEXPLANON [Suspect]
     Active Substance: ETONOGESTREL
     Indication: CONTRACEPTION
     Dosage: UNK
     Route: 058
     Dates: start: 20141029, end: 20141230

REACTIONS (6)
  - Keratitis [Not Recovered/Not Resolved]
  - Sjogren^s syndrome [Unknown]
  - Eczema [Recovering/Resolving]
  - Affective disorder [Not Recovered/Not Resolved]
  - Depression [Unknown]
  - Dry skin [Unknown]

NARRATIVE: CASE EVENT DATE: 2014
